FAERS Safety Report 13195020 (Version 2)
Quarter: 2017Q1

REPORT INFORMATION
  Report Type: Report from Study
  Country: JP (occurrence: JP)
  Receive Date: 20170207
  Receipt Date: 20170309
  Transmission Date: 20170428
  Serious: Yes (Death, Life-Threatening, Hospitalization, Disabling, Other)
  Sender: FDA-Public Use
  Company Number: JP-ALXN-A201700014AA

PATIENT
  Age: 83 Year
  Sex: Female
  Weight: 50 kg

DRUGS (9)
  1. LANSOPRAZOLE ALMUS [Concomitant]
     Indication: PRODUCT USED FOR UNKNOWN INDICATION
     Dosage: 15 MG, DAILY
     Route: 065
     Dates: start: 201408, end: 20161202
  2. SOLIRIS [Suspect]
     Active Substance: ECULIZUMAB
     Dosage: 900 MG, Q2W
     Route: 042
     Dates: start: 20150924, end: 20161012
  3. ACTONEL [Concomitant]
     Active Substance: RISEDRONATE SODIUM
     Indication: PRODUCT USED FOR UNKNOWN INDICATION
     Dosage: 17.5 MG, DAILY
     Route: 065
     Dates: start: 201408, end: 20161202
  4. SOLIRIS [Suspect]
     Active Substance: ECULIZUMAB
     Indication: PAROXYSMAL NOCTURNAL HAEMOGLOBINURIA
     Dosage: 600 MG, QW
     Route: 042
     Dates: start: 20150826, end: 20150916
  5. PREDONINE [Concomitant]
     Active Substance: PREDNISOLONE
     Dosage: 5 MG, DAILY
     Route: 065
  6. NESP [Concomitant]
     Active Substance: DARBEPOETIN ALFA
     Indication: PAROXYSMAL NOCTURNAL HAEMOGLOBINURIA
     Dosage: 240 MG, DAILY
     Route: 065
     Dates: start: 20160615, end: 20160928
  7. PREDONINE [Concomitant]
     Active Substance: PREDNISOLONE
     Indication: PAROXYSMAL NOCTURNAL HAEMOGLOBINURIA
     Dosage: 10 MG, DAILY
     Route: 065
     Dates: start: 201408, end: 20161012
  8. PREDONINE [Concomitant]
     Active Substance: PREDNISOLONE
     Dosage: 10 MG, DAILY
     Route: 065
  9. URSODEOXYCHOLIC ACID [Concomitant]
     Active Substance: URSODIOL
     Indication: PRODUCT USED FOR UNKNOWN INDICATION
     Dosage: 100 MG, DAILY
     Route: 065
     Dates: start: 201408, end: 20161202

REACTIONS (9)
  - Herpes virus infection [Not Recovered/Not Resolved]
  - Enterocolitis [Unknown]
  - Myelodysplastic syndrome [Fatal]
  - Cellulitis [Not Recovered/Not Resolved]
  - Small intestinal perforation [Not Recovered/Not Resolved]
  - Condition aggravated [Fatal]
  - Acute myeloid leukaemia [Fatal]
  - Stomatitis [Not Recovered/Not Resolved]
  - Bacterial infection [Not Recovered/Not Resolved]

NARRATIVE: CASE EVENT DATE: 20161007
